FAERS Safety Report 16969429 (Version 1)
Quarter: 2019Q4

REPORT INFORMATION
  Report Type: Spontaneous
  Country: US (occurrence: US)
  Receive Date: 20191029
  Receipt Date: 20191029
  Transmission Date: 20200122
  Serious: No
  Sender: FDA-Public Use
  Company Number: US-CELGENEUS-USA-20191008601

PATIENT
  Sex: Male

DRUGS (3)
  1. OTEZLA [Suspect]
     Active Substance: APREMILAST
     Indication: OFF LABEL USE
  2. OTEZLA [Suspect]
     Active Substance: APREMILAST
     Indication: SEBORRHOEIC DERMATITIS
     Route: 048
  3. OTEZLA [Suspect]
     Active Substance: APREMILAST
     Indication: ARTHRITIS

REACTIONS (1)
  - Drug ineffective [Unknown]
